FAERS Safety Report 7298359-3 (Version None)
Quarter: 2011Q1

REPORT INFORMATION
  Report Type: 
  Country: None (occurrence: None)
  Receive Date: 20110217
  Receipt Date: 20110208
  Transmission Date: 20110831
  Serious: Yes (Hospitalization)
  Sender: FDA-Public Use
  Company Number: CA-JNJFOC-20110202623

PATIENT
  Age: 16 Year
  Sex: Female

DRUGS (2)
  1. MESALAMINE [Concomitant]
     Indication: CROHN'S DISEASE
  2. INFLIXIMAB, RECOMBINANT [Suspect]
     Indication: CROHN'S DISEASE
     Dosage: STARTED 6 MONTHS BEFORE HOSPITAL ADMISSION
     Route: 042

REACTIONS (2)
  - CARDIAC MURMUR [None]
  - EPSTEIN-BARR VIRUS ASSOCIATED LYMPHOPROLIFERATIVE DISORDER [None]
